FAERS Safety Report 17696875 (Version 1)
Quarter: 2020Q2

REPORT INFORMATION
  Report Type: Report from Study
  Country: None (occurrence: US)
  Receive Date: 20200423
  Receipt Date: 20200423
  Transmission Date: 20200714
  Serious: Yes (Other)
  Sender: FDA-Public Use
  Company Number: US-ABBVIE-19K-163-3158088-00

PATIENT
  Sex: Female

DRUGS (3)
  1. IMBRUVICA [Suspect]
     Active Substance: IBRUTINIB
     Indication: CHRONIC LYMPHOCYTIC LEUKAEMIA
     Route: 048
  2. BIOTIN [Suspect]
     Active Substance: BIOTIN
     Indication: PRODUCT USED FOR UNKNOWN INDICATION
     Route: 048
  3. IMBRUVICA [Suspect]
     Active Substance: IBRUTINIB
     Indication: CHRONIC LYMPHOCYTIC LEUKAEMIA
     Dosage: 420 MG, QD
     Route: 048
     Dates: start: 20180504

REACTIONS (12)
  - Contusion [Unknown]
  - White blood cell count decreased [Unknown]
  - Nail growth abnormal [Unknown]
  - Nail disorder [Unknown]
  - Cataract [Unknown]
  - Rash [Unknown]
  - Arthropod bite [Unknown]
  - Blood creatinine increased [Unknown]
  - Anxiety [Unknown]
  - Onychoclasis [Unknown]
  - Transient ischaemic attack [Unknown]
  - Nail infection [Unknown]
